FAERS Safety Report 7505275-8 (Version None)
Quarter: 2011Q2

REPORT INFORMATION
  Report Type: 
  Country: None (occurrence: None)
  Receive Date: 20110519
  Receipt Date: 20110510
  Transmission Date: 20111010
  Serious: Yes (Other)
  Sender: FDA-Public Use
  Company Number: 2011SP021277

PATIENT
  Sex: Female

DRUGS (4)
  1. METFFORMIN HYDROCHLORIDE [Concomitant]
  2. NUVARING [Suspect]
     Indication: PRODUCT USED FOR UNKNOWN INDICATION
     Dosage: 1 DF, VAG
     Route: 067
  3. ABILIFY [Concomitant]
  4. PROZAC [Concomitant]

REACTIONS (2)
  - DEVICE BREAKAGE [None]
  - UTERINE HAEMORRHAGE [None]
